FAERS Safety Report 4385885-X (Version None)
Quarter: 2004Q2

REPORT INFORMATION
  Report Type: 
  Country: None (occurrence: None)
  Receive Date: 20040628
  Receipt Date: 20040531
  Transmission Date: 20050107
  Serious: Yes (Disabling)
  Sender: FDA-Public Use
  Company Number: JP-GLAXOSMITHKLINE-B0334334A

PATIENT
  Age: 3 Year
  Sex: Male

DRUGS (7)
  1. ZOVIRAX [Suspect]
     Indication: ENCEPHALITIS HERPES
     Dosage: 150MG THREE TIMES PER DAY
     Route: 042
     Dates: start: 20040417, end: 20040419
  2. UNASYN [Suspect]
     Indication: BRONCHITIS
     Dosage: 500MG FOUR TIMES PER DAY
     Route: 042
     Dates: start: 20040419, end: 20040419
  3. DORMICUM [Suspect]
     Indication: CONVULSION
     Dosage: 120MG PER DAY
     Route: 042
     Dates: start: 20040419, end: 20040419
  4. GLYCEOL [Concomitant]
     Indication: ENCEPHALITIS
     Dosage: 330ML PER DAY
     Route: 042
     Dates: start: 20040419, end: 20040419
  5. AMPICILLIN [Concomitant]
     Route: 042
     Dates: start: 20040411
  6. PHENOBARBITAL SODIUM [Concomitant]
     Indication: CONVULSION
     Dosage: 75MG PER DAY
     Route: 054
     Dates: start: 20040419
  7. SOLITA-T NO.3 [Concomitant]
     Indication: DEHYDRATION
     Dosage: 600ML PER DAY
     Route: 042
     Dates: start: 20040419, end: 20040430

REACTIONS (4)
  - ALANINE AMINOTRANSFERASE INCREASED [None]
  - ASPARTATE AMINOTRANSFERASE INCREASED [None]
  - BLOOD LACTATE DEHYDROGENASE INCREASED [None]
  - HEPATIC FUNCTION ABNORMAL [None]
